FAERS Safety Report 6613178-6 (Version None)
Quarter: 2010Q1

REPORT INFORMATION
  Report Type: 
  Country: None (occurrence: None)
  Receive Date: 20100304
  Receipt Date: 20100217
  Transmission Date: 20100710
  Serious: No
  Sender: FDA-Public Use
  Company Number: US-JNJFOC-20100208728

PATIENT
  Sex: Male
  Weight: 77.11 kg

DRUGS (4)
  1. FENTANYL-100 [Suspect]
     Indication: ARTHRALGIA
     Route: 062
  2. FENTANYL-100 [Suspect]
     Route: 062
  3. FENTANYL-100 [Suspect]
     Route: 062
  4. TYLENOL W/ CODEINE [Concomitant]
     Route: 048

REACTIONS (4)
  - FATIGUE [None]
  - SOMNOLENCE [None]
  - THERAPEUTIC RESPONSE DECREASED [None]
  - WRONG TECHNIQUE IN DRUG USAGE PROCESS [None]
